FAERS Safety Report 18945924 (Version 1)
Quarter: 2021Q1

REPORT INFORMATION
  Report Type: Other
  Country: JP (occurrence: JP)
  Receive Date: 20210226
  Receipt Date: 20210226
  Transmission Date: 20210420
  Serious: Yes (Other)
  Sender: FDA-Public Use
  Company Number: JP-ACACIA PHARMA LIMITED-2107367

PATIENT

DRUGS (3)
  1. PHYSIO 140 [Suspect]
     Active Substance: CALCIUM GLUCONATE\DEXTROSE\MAGNESIUM CHLORIDE\POTASSIUM CHLORIDE\SODIUM ACETATE\SODIUM CHLORIDE\TRISODIUM CITRATE DIHYDRATE
     Route: 042
  2. ROCURONIUM BROMIDE. [Concomitant]
     Active Substance: ROCURONIUM BROMIDE
     Route: 042
  3. BYFAVO [Suspect]
     Active Substance: REMIMAZOLAM BESYLATE
     Indication: ANAESTHESIA
     Route: 042

REACTIONS (1)
  - Vascular access site occlusion [Unknown]
